FAERS Safety Report 7334989-8 (Version None)
Quarter: 2011Q1

REPORT INFORMATION
  Report Type: 
  Country: None (occurrence: None)
  Receive Date: 20110302
  Receipt Date: 20110302
  Transmission Date: 20110831
  Serious: Yes (Disabling)
  Sender: FDA-Public Use
  Company Number: None

PATIENT
  Sex: Male
  Weight: 68.0396 kg

DRUGS (2)
  1. ZOCOR [Suspect]
  2. ZOCOR [Suspect]
     Indication: BLOOD CHOLESTEROL INCREASED
     Dosage: 40 MG 1-HALF DAILY
     Dates: start: 20040929

REACTIONS (2)
  - MUSCLE INJURY [None]
  - BLOOD CREATINE PHOSPHOKINASE INCREASED [None]
